FAERS Safety Report 12975043 (Version 1)
Quarter: 2016Q4

REPORT INFORMATION
  Report Type: Spontaneous
  Country: AR (occurrence: AR)
  Receive Date: 20161125
  Receipt Date: 20161125
  Transmission Date: 20170207
  Serious: Yes (Other)
  Sender: FDA-Public Use
  Company Number: AR-NODEN PHARMA DAC-NOD-2016-000040

PATIENT
  Age: 84 Year
  Sex: Female

DRUGS (1)
  1. RASILEZ [Suspect]
     Active Substance: ALISKIREN
     Indication: HYPERTENSION
     Dosage: 1 DF, QD (SINCE 2 OR 3 APPROXIMATELY AND 1 MONTH AGO)
     Route: 065

REACTIONS (3)
  - Blood pressure increased [Recovering/Resolving]
  - Fall [Recovering/Resolving]
  - Nervousness [Recovering/Resolving]

NARRATIVE: CASE EVENT DATE: 20160316
